FAERS Safety Report 5279975-7 (Version None)
Quarter: 2007Q1

REPORT INFORMATION
  Report Type: 
  Country: None (occurrence: None)
  Receive Date: 20061215
  Receipt Date: 20060103
  Transmission Date: 20070707
  Serious: Yes (Other)
  Sender: FDA-Public Use
  Company Number: HQWYE188204JAN06

PATIENT
  Age: 45 Year
  Sex: Female
  Weight: 58.11 kg

DRUGS (6)
  1. EFFEXOR XR [Suspect]
     Indication: DEPRESSION
     Dosage: 150 MG 1 X PER 1 DAY, ORAL
     Route: 048
     Dates: start: 20051119, end: 20051227
  2. AMBIEN [Concomitant]
  3. KLONOPIN [Concomitant]
  4. CRESTOR [Concomitant]
  5. DOXYCYCLINE [Concomitant]
  6. AMOXICILLIN [Concomitant]

REACTIONS (6)
  - DIARRHOEA [None]
  - DRUG WITHDRAWAL SYNDROME [None]
  - MIGRAINE [None]
  - PANIC ATTACK [None]
  - SUICIDAL IDEATION [None]
  - VOMITING [None]
